FAERS Safety Report 5273743-8 (Version None)
Quarter: 2007Q1

REPORT INFORMATION
  Report Type: 
  Country: None (occurrence: None)
  Receive Date: 20061219
  Receipt Date: 20060929
  Transmission Date: 20070707
  Serious: Yes (Hospitalization, Other)
  Sender: FDA-Public Use
  Company Number: US-JNJFOC-20060806794

PATIENT
  Age: 30 Year
  Sex: Female
  Weight: 72.1219 kg

DRUGS (7)
  1. ORTHO EVRA [Suspect]
     Indication: CONTRACEPTION
     Dosage: TRANSDERMAL
     Route: 062
     Dates: start: 20050901
  2. RHINOCORT AQUA (SPRAY) BUDESONIDE [Concomitant]
  3. ZOMIG (UNKNOWN) ZOLMITRIPTAN [Concomitant]
  4. ZYRTEC [Concomitant]
  5. EFFEXOR XR (VENLAFAXINE HYDROCHLORIDE) UNKNOWN [Concomitant]
  6. EPHEDRA (EPHEDRA) [Concomitant]
  7. SYNTHROID [Concomitant]

REACTIONS (1)
  - PULMONARY EMBOLISM [None]
